FAERS Safety Report 5674893-4 (Version None)
Quarter: 2008Q1

REPORT INFORMATION
  Report Type: 
  Country: None (occurrence: None)
  Receive Date: 20080319
  Receipt Date: 20080319
  Transmission Date: 20080703
  Serious: Yes (Hospitalization)
  Sender: FDA-Public Use
  Company Number: None

PATIENT
  Age: 55 Year
  Sex: Female
  Weight: 183 kg

DRUGS (2)
  1. LISINOPRIL [Suspect]
     Indication: CARDIAC FAILURE CONGESTIVE
     Dosage: DAILY PO
     Route: 048
     Dates: start: 20070301, end: 20080318
  2. LISINOPRIL [Suspect]
     Indication: HYPERTENSION
     Dosage: DAILY PO
     Route: 048
     Dates: start: 20070301, end: 20080318

REACTIONS (2)
  - ANGIOEDEMA [None]
  - RESPIRATORY DISTRESS [None]
